FAERS Safety Report 10084811 (Version 1)
Quarter: 2014Q2

REPORT INFORMATION
  Report Type: Report from Study
  Country: IT (occurrence: IT)
  Receive Date: 20140417
  Receipt Date: 20140417
  Transmission Date: 20141212
  Serious: Yes (Hospitalization)
  Sender: FDA-Public Use
  Company Number: IT-AMGEN-ITANI2014026622

PATIENT
  Age: 64 Year
  Sex: Male

DRUGS (11)
  1. PEGFILGRASTIM [Suspect]
     Indication: LYMPHOMA
     Dosage: 6 MG, UNK
     Route: 058
     Dates: start: 20120617
  2. CISPLATIN [Concomitant]
     Dosage: 100 MG, UNK
     Route: 042
     Dates: start: 20120613, end: 20120616
  3. ARA-C [Concomitant]
     Dosage: 2 G/M2, UNK
     Route: 042
     Dates: start: 20120613, end: 20120616
  4. ETOPOSIDE [Concomitant]
     Dosage: 180 MG, UNK
     Route: 042
  5. METHYLPREDNISOLON                  /00049601/ [Concomitant]
     Dosage: UNK
     Route: 042
     Dates: start: 20120613, end: 20120616
  6. CYTARABINE [Concomitant]
     Dosage: UNK
     Route: 042
     Dates: start: 20120613, end: 20120616
  7. RITUXIMAB [Concomitant]
     Dosage: UNK
     Dates: start: 20120613, end: 20120616
  8. CLEXANE [Concomitant]
     Dosage: 0.8 IU, UNK
     Route: 058
     Dates: start: 20120616, end: 20120623
  9. LAMIVUDINE [Concomitant]
     Dosage: 100 MG, UNK
     Route: 048
  10. AMIKACINE                          /00391001/ [Concomitant]
  11. CEFTAZIDIME [Concomitant]

REACTIONS (1)
  - Febrile neutropenia [Recovered/Resolved]
